FAERS Safety Report 8897041 (Version 1)
Quarter: 2012Q4

REPORT INFORMATION
  Report Type: 
  Country: US (occurrence: US)
  Receive Date: 20121108
  Receipt Date: 20121108
  Transmission Date: 20130627
  Serious: No
  Sender: FDA-Public Use
  Company Number: US-AMGEN-USASP2012026953

PATIENT
  Age: 49 Year
  Sex: Female
  Weight: 121.54 kg

DRUGS (4)
  1. ENBREL [Suspect]
     Indication: PSORIATIC ARTHROPATHY
     Dosage: 50 mg, qwk
     Route: 058
  2. METHOTREXATE [Concomitant]
     Dosage: 2.5 mg, UNK
  3. ALEVE [Concomitant]
     Dosage: 220 mg, UNK
  4. FOLIC ACID [Concomitant]
     Dosage: 5 mg, UNK

REACTIONS (1)
  - Pneumonia [Recovered/Resolved]
